FAERS Safety Report 8081601-9 (Version None)
Quarter: 2012Q1

REPORT INFORMATION
  Report Type: 
  Country: None (occurrence: None)
  Receive Date: 20120130
  Receipt Date: 20120123
  Transmission Date: 20120608
  Serious: Yes (Other)
  Sender: FDA-Public Use
  Company Number: CHPA2011US016067

PATIENT
  Age: 50 Year
  Sex: Female

DRUGS (2)
  1. BENEFIBER PLUS CALCIUM WITH WHEAT DEXTRIN [Suspect]
     Indication: MEDICAL DIET
     Dosage: 2 TSP, QD
     Route: 048
     Dates: start: 20110101
  2. LOVAZA [Concomitant]
     Route: 048

REACTIONS (4)
  - ABDOMINAL PAIN [None]
  - CONSTIPATION [None]
  - URINARY TRACT INFECTION [None]
  - ABDOMINAL DISTENSION [None]
